FAERS Safety Report 8619388-0 (Version None)
Quarter: 2012Q3

REPORT INFORMATION
  Report Type: 
  Country: None (occurrence: None)
  Receive Date: 20120824
  Receipt Date: 20120813
  Transmission Date: 20120928
  Serious: Yes (Other)
  Sender: FDA-Public Use
  Company Number: US-BRISTOL-MYERS SQUIBB COMPANY-16851099

PATIENT
  Age: 64 Year
  Sex: Male

DRUGS (3)
  1. CARBIDOPA, LEVODOPA AND ENTACAPONE [Suspect]
     Indication: PARKINSON'S DISEASE
     Dosage: 1DF: 125/31.25/200MG
  2. PRAMIPEXOLE DIHYDROCHLORIDE [Suspect]
  3. CARBIDOPA + LEVODOPA [Suspect]
     Indication: PARKINSON'S DISEASE
     Dosage: 1DF: 100/25MG

REACTIONS (1)
  - PARKINSON'S DISEASE [None]
